FAERS Safety Report 8983882 (Version 5)
Quarter: 2015Q2

REPORT INFORMATION
  Report Type: Report from Study
  Country: US (occurrence: US)
  Receive Date: 20121224
  Receipt Date: 20150622
  Transmission Date: 20150821
  Serious: Yes (Life-Threatening)
  Sender: FDA-Public Use
  Company Number: US-NOVOPROD-367599

PATIENT
  Age: 84 Year
  Sex: Male
  Weight: 71.11 kg

DRUGS (1)
  1. LIRAGLUTIDE FLEXPEN [Suspect]
     Active Substance: LIRAGLUTIDE
     Indication: TYPE 2 DIABETES MELLITUS
     Dosage: 1.2 MG, QD
     Route: 058
     Dates: start: 20120322

REACTIONS (1)
  - Sinus node dysfunction [Recovered/Resolved with Sequelae]

NARRATIVE: CASE EVENT DATE: 20120925
